FAERS Safety Report 7007046-8 (Version None)
Quarter: 2010Q3

REPORT INFORMATION
  Report Type: 
  Country: None (occurrence: None)
  Receive Date: 20100922
  Receipt Date: 20100920
  Transmission Date: 20110219
  Serious: Yes (Life-Threatening)
  Sender: FDA-Public Use
  Company Number: GB-WYE-G06699510

PATIENT
  Age: 89 Year
  Sex: Female

DRUGS (14)
  1. TAZOCIN [Suspect]
     Indication: SEPSIS
     Route: 042
     Dates: start: 20100901, end: 20100908
  2. TAZOCIN [Suspect]
     Indication: GRAM STAIN NEGATIVE
  3. ASPIRIN [Concomitant]
     Dosage: UNKNOWN
  4. BISOPROLOL [Concomitant]
     Dosage: UNKNOWN
  5. AMPICILLIN SODIUM/SULBACTAM SODIUM [Concomitant]
     Indication: URINARY TRACT INFECTION
     Dosage: 1.2G FREQUENCY UNKNOWN
     Route: 042
     Dates: start: 20100828, end: 20100901
  6. GENTAMICIN [Concomitant]
     Indication: URINARY TRACT INFECTION
     Dosage: 250MG FREQUENCY UNKNOWN
     Route: 042
     Dates: start: 20100828, end: 20100828
  7. NYSTATIN [Concomitant]
     Dosage: UNKNOWN
  8. LACTULOSE [Concomitant]
  9. METFORMIN [Concomitant]
     Dosage: UNKNOWN
  10. MIXTARD HUMAN 70/30 [Concomitant]
     Dosage: UNKNOWN
  11. NULYTELY [Concomitant]
     Dosage: UNKNOWN
  12. MINERALS NOS/VITAMINS NOS [Concomitant]
     Dosage: UNKNOWN
  13. ADCAL D3 [Concomitant]
     Dosage: UNKNOWN
  14. GLICLAZIDE [Concomitant]
     Dosage: UNKNOWN

REACTIONS (1)
  - DISSEMINATED INTRAVASCULAR COAGULATION [None]
